FAERS Safety Report 10039601 (Version 1)
Quarter: 2014Q1

REPORT INFORMATION
  Report Type: Spontaneous
  Country: TR (occurrence: TR)
  Receive Date: 20140326
  Receipt Date: 20140326
  Transmission Date: 20141002
  Serious: Yes (Other)
  Sender: FDA-Public Use
  Company Number: TR-MYLANLABS-2014S1005939

PATIENT
  Age: 15 Year
  Sex: Male

DRUGS (2)
  1. VALPROATE [Suspect]
     Dosage: 33 MG/KG
     Route: 042
  2. LEVETIRACETAM [Suspect]
     Dosage: 44 MG/KG
     Route: 065

REACTIONS (1)
  - Hyperammonaemia [Recovering/Resolving]
